FAERS Safety Report 24732101 (Version 1)
Quarter: 2024Q4

REPORT INFORMATION
  Report Type: Spontaneous
  Country: US (occurrence: US)
  Receive Date: 20241213
  Receipt Date: 20241213
  Transmission Date: 20250114
  Serious: Yes (Hospitalization)
  Sender: GLAXOSMITHKLINE
  Company Number: US-GSK-US2024AMR154911

PATIENT
  Sex: Male

DRUGS (1)
  1. MOMELOTINIB [Suspect]
     Active Substance: MOMELOTINIB
     Indication: Product used for unknown indication
     Dosage: UNK

REACTIONS (2)
  - Diarrhoea [Unknown]
  - Nausea [Unknown]
